FAERS Safety Report 8245522-0 (Version None)
Quarter: 2012Q1

REPORT INFORMATION
  Report Type: 
  Country: None (occurrence: None)
  Receive Date: 20120329
  Receipt Date: 20120319
  Transmission Date: 20120608
  Serious: Yes (Other)
  Sender: FDA-Public Use
  Company Number: US-RB-038403-12

PATIENT
  Age: 27 Year
  Sex: Female

DRUGS (3)
  1. SUBOXONE [Suspect]
     Route: 060
     Dates: start: 20101101, end: 20111001
  2. SUBOXONE [Suspect]
     Indication: DRUG DEPENDENCE
     Route: 060
     Dates: start: 20101001, end: 20101101
  3. SUBOXONE [Suspect]
     Dosage: VARIOUS SELF-TAPERED DOSES
     Route: 060
     Dates: start: 20111101, end: 20120315

REACTIONS (10)
  - HOT FLUSH [None]
  - ABORTION INDUCED [None]
  - CHILLS [None]
  - INSOMNIA [None]
  - VICTIM OF SEXUAL ABUSE [None]
  - WRONG TECHNIQUE IN DRUG USAGE PROCESS [None]
  - MATERNAL EXPOSURE DURING PREGNANCY [None]
  - RESTLESSNESS [None]
  - UNDERDOSE [None]
  - PAIN [None]
